FAERS Safety Report 16054208 (Version 6)
Quarter: 2019Q3

REPORT INFORMATION
  Report Type: Spontaneous
  Country: PT (occurrence: PT)
  Receive Date: 20190308
  Receipt Date: 20190709
  Transmission Date: 20191004
  Serious: Yes (Hospitalization, Other)
  Sender: FDA-Public Use
  Company Number: PT-MYLANLABS-2019M1019581

PATIENT
  Age: 13 Month
  Sex: Female

DRUGS (7)
  1. ACETYLSALICYLIC ACID [Suspect]
     Active Substance: ASPIRIN
     Indication: PRODUCT USED FOR UNKNOWN INDICATION
     Dosage: 50 MILLIGRAM/KILOGRAM, QD
     Route: 065
  2. FLUCLOXACILLIN                     /00239102/ [Suspect]
     Active Substance: FLUCLOXACILLIN SODIUM
     Indication: PRODUCT USED FOR UNKNOWN INDICATION
     Dosage: 100 MILLIGRAM/KILOGRAM, QD
     Route: 065
  3. GAMMAGLOBULIN [Suspect]
     Active Substance: HUMAN IMMUNOGLOBULIN G
     Indication: PRODUCT USED FOR UNKNOWN INDICATION
     Dosage: 2 MILLIGRAM/KILOGRAM, SINGLE DOSE
     Route: 065
  4. IBUPROFEN. [Suspect]
     Active Substance: IBUPROFEN
     Indication: PYREXIA
  5. PARACETAMOL [Suspect]
     Active Substance: ACETAMINOPHEN
     Indication: HAND-FOOT-AND-MOUTH DISEASE
     Dosage: 50 MILLIGRAM/KILOGRAM, QD
     Route: 065
  6. PARACETAMOL [Suspect]
     Active Substance: ACETAMINOPHEN
     Indication: PYREXIA
  7. IBUPROFEN. [Suspect]
     Active Substance: IBUPROFEN
     Indication: HAND-FOOT-AND-MOUTH DISEASE
     Dosage: UNK
     Route: 065

REACTIONS (26)
  - Pain [Recovering/Resolving]
  - Acute haemorrhagic oedema of infancy [Unknown]
  - Kawasaki^s disease [Recovering/Resolving]
  - Lymphadenitis [Recovering/Resolving]
  - Skin lesion [Recovering/Resolving]
  - Inflammation [Recovering/Resolving]
  - Rash papular [Recovering/Resolving]
  - Lymphadenopathy [Recovering/Resolving]
  - Oedema peripheral [Recovering/Resolving]
  - Poor feeding infant [Recovering/Resolving]
  - Diarrhoea haemorrhagic [Recovering/Resolving]
  - Strawberry tongue [Recovering/Resolving]
  - Hypoalbuminaemia [Recovering/Resolving]
  - Thrombocytosis [Recovering/Resolving]
  - Tenderness [Recovering/Resolving]
  - Malaise [Recovering/Resolving]
  - Rash [Recovering/Resolving]
  - Vasculitis [Recovering/Resolving]
  - Neck pain [Recovering/Resolving]
  - Normochromic anaemia [Recovering/Resolving]
  - Condition aggravated [Recovering/Resolving]
  - Haematuria [Recovering/Resolving]
  - Pyrexia [Recovering/Resolving]
  - Oedema [Recovering/Resolving]
  - Irritability [Recovering/Resolving]
  - Food refusal [Recovering/Resolving]
